FAERS Safety Report 20985778 (Version 1)
Quarter: 2022Q2

REPORT INFORMATION
  Report Type: Spontaneous
  Country: US (occurrence: None)
  Receive Date: 20220617
  Receipt Date: 20220617
  Transmission Date: 20220721
  Serious: Yes (Hospitalization)
  Sender: FDA-Public Use
  Company Number: None

PATIENT
  Age: 64 Year
  Sex: Male

DRUGS (1)
  1. COSENTYX [Suspect]
     Active Substance: SECUKINUMAB
     Dosage: 450 MG OTHER SUBCUTANEOUS
     Route: 058
     Dates: start: 20200413

REACTIONS (1)
  - Hip fracture [None]

NARRATIVE: CASE EVENT DATE: 20220603
